FAERS Safety Report 5238618-9 (Version None)
Quarter: 2007Q1

REPORT INFORMATION
  Report Type: 
  Country: None (occurrence: None)
  Receive Date: 20070215
  Receipt Date: 20070202
  Transmission Date: 20070707
  Serious: Yes (Hospitalization)
  Sender: FDA-Public Use
  Company Number: US-ELI_LILLY_AND_COMPANY-US200702000768

PATIENT
  Age: 50 Year
  Sex: Female

DRUGS (4)
  1. PROZAC [Suspect]
     Indication: DEPRESSION
     Dosage: 100 MG, UNK
     Dates: start: 19890101
  2. PROZAC [Suspect]
     Dosage: 60 MG, UNK
  3. TRAZODONE HCL [Concomitant]
     Dosage: 150 MG, EACH EVENING
  4. LORAZEPAM [Concomitant]
     Dosage: 1 MG, EACH EVENING

REACTIONS (8)
  - ADVERSE DRUG REACTION [None]
  - AGITATION [None]
  - BREAST CANCER [None]
  - DEPRESSION [None]
  - EYE MOVEMENT DISORDER [None]
  - HYPERREFLEXIA [None]
  - METABOLIC DISORDER [None]
  - MOVEMENT DISORDER [None]
